FAERS Safety Report 5671206-9 (Version None)
Quarter: 2008Q1

REPORT INFORMATION
  Report Type: 
  Country: None (occurrence: None)
  Receive Date: 20080313
  Receipt Date: 20080303
  Transmission Date: 20080703
  Serious: Yes (Death, Life-Threatening, Other)
  Sender: FDA-Public Use
  Company Number: 45780

PATIENT
  Age: 71 Year
  Sex: Male

DRUGS (1)
  1. CARBOPLATIN [Suspect]
     Indication: ADENOCARCINOMA

REACTIONS (5)
  - ALOPECIA [None]
  - BONE MARROW FAILURE [None]
  - CARDIAC ARREST [None]
  - ENCEPHALOPATHY [None]
  - HYPERSENSITIVITY [None]
